FAERS Safety Report 15761835 (Version 1)
Quarter: 2018Q4

REPORT INFORMATION
  Report Type: Spontaneous
  Country: US (occurrence: US)
  Receive Date: 20181226
  Receipt Date: 20181226
  Transmission Date: 20190205
  Serious: No
  Sender: FDA-Public Use
  Company Number: US-SUNOVION-2018SUN004857

PATIENT
  Age: 42 Year
  Sex: Female

DRUGS (2)
  1. LATUDA [Suspect]
     Active Substance: LURASIDONE HYDROCHLORIDE
     Indication: BIPOLAR DISORDER
     Dosage: 60 MG
     Route: 048
  2. LITHIUM ASPARTATE [Suspect]
     Active Substance: LITHIUM ASPARTATE
     Dosage: UNK
     Route: 065

REACTIONS (1)
  - Akathisia [Unknown]
